FAERS Safety Report 9312297 (Version 1)
Quarter: 2013Q2

REPORT INFORMATION
  Report Type: Spontaneous
  Country: CH (occurrence: CH)
  Receive Date: 20130528
  Receipt Date: 20130528
  Transmission Date: 20140414
  Serious: Yes (Other)
  Sender: FDA-Public Use
  Company Number: CH-BRISTOL-MYERS SQUIBB COMPANY-18921437

PATIENT
  Age: 67 Year
  Sex: Male
  Weight: 95 kg

DRUGS (2)
  1. PARAPLATIN INJ 150 MG [Suspect]
     Indication: NEUROENDOCRINE CARCINOMA METASTATIC
     Route: 041
     Dates: start: 20130306
  2. ETOPOSIDE PHOSPHATE [Suspect]
     Indication: NEUROENDOCRINE CARCINOMA METASTATIC
     Route: 041
     Dates: start: 20130306, end: 20130416

REACTIONS (1)
  - Arterial thrombosis [Unknown]
